FAERS Safety Report 8348757-1 (Version None)
Quarter: 2012Q2

REPORT INFORMATION
  Report Type: 
  Country: None (occurrence: None)
  Receive Date: 20120510
  Receipt Date: 20120508
  Transmission Date: 20120825
  Serious: No
  Sender: FDA-Public Use
  Company Number: US-PFIZER INC-2012112612

PATIENT
  Sex: Male
  Weight: 75.7 kg

DRUGS (2)
  1. SUTENT [Suspect]
     Indication: RENAL CANCER
     Dosage: UNK, 1X/DAY
     Route: 048
     Dates: start: 20120424
  2. SUTENT [Suspect]
     Indication: LUNG NEOPLASM

REACTIONS (2)
  - ASTHENIA [None]
  - FALL [None]
